FAERS Safety Report 18105456 (Version 2)
Quarter: 2024Q3

REPORT INFORMATION
  Report Type: Spontaneous
  Country: DE (occurrence: DE)
  Receive Date: 20200804
  Receipt Date: 20240709
  Transmission Date: 20241017
  Serious: Yes (Death)
  Sender: AMGEN
  Company Number: DE-ROCHE-2647288

PATIENT
  Age: 76 Year
  Sex: Female
  Weight: 60 kg

DRUGS (4)
  1. TRASTUZUMAB [Suspect]
     Active Substance: TRASTUZUMAB
     Indication: Breast cancer
     Dosage: UNK
     Route: 065
  2. TRASTUZUMAB [Suspect]
     Active Substance: TRASTUZUMAB
     Dosage: ON 02/OCT/2019, PATIENT RECEIVED LAST DOSE OF DRUG- 420 MG PRIOR TO AE.
     Route: 065
     Dates: end: 20191002
  3. PERJETA [Suspect]
     Active Substance: PERTUZUMAB
     Indication: Breast cancer
     Dosage: 420 MILLIGRAM, CYCLICAL
     Route: 065
     Dates: start: 20200710, end: 20200710
  4. PACLITAXEL [Suspect]
     Active Substance: PACLITAXEL
     Indication: Breast cancer
     Dosage: 128 MILLIGRAM, CYCLICAL
     Route: 065
     Dates: start: 20190221, end: 20190404

REACTIONS (2)
  - Nosocomial infection [Fatal]
  - Off label use [Unknown]

NARRATIVE: CASE EVENT DATE: 20200426
